FAERS Safety Report 21290596 (Version 3)
Quarter: 2025Q4

REPORT INFORMATION
  Report Type: Spontaneous
  Country: EU (occurrence: EU)
  Receive Date: 20220903
  Receipt Date: 20251118
  Transmission Date: 20260117
  Serious: Yes (Hospitalization, Other)
  Sender: AUROBINDO
  Company Number: EU-SA-SAC20220818001686

PATIENT
  Age: 72 Year
  Sex: Female

DRUGS (2)
  1. LEVOFLOXACIN [Suspect]
     Active Substance: LEVOFLOXACIN
     Indication: Pneumonia
     Dosage: UNK
     Route: 065
  2. LEVOFLOXACIN [Suspect]
     Active Substance: LEVOFLOXACIN
     Indication: Pneumonitis

REACTIONS (11)
  - Acinetobacter infection [Unknown]
  - Device related infection [Unknown]
  - SJS-TEN overlap [Unknown]
  - Stevens-Johnson syndrome [Recovering/Resolving]
  - Leukocytosis [Recovering/Resolving]
  - Procalcitonin increased [Recovering/Resolving]
  - Hypoalbuminaemia [Recovering/Resolving]
  - Anaemia [Recovering/Resolving]
  - Pyrexia [Recovering/Resolving]
  - Toxic epidermal necrolysis [Unknown]
  - Overlap syndrome [Unknown]
